FAERS Safety Report 13436664 (Version 8)
Quarter: 2018Q3

REPORT INFORMATION
  Report Type: Report from Study
  Country: CA (occurrence: CA)
  Receive Date: 20170413
  Receipt Date: 20180712
  Transmission Date: 20181010
  Serious: Yes (Disabling)
  Sender: FDA-Public Use
  Company Number: CA-ACTELION-A-NJ2017-148957

PATIENT
  Age: 58 Year
  Sex: Female

DRUGS (12)
  1. UPTRAVI [Suspect]
     Active Substance: SELEXIPAG
     Dosage: 400 MCG IN AM, 600 MCG IN PM
     Route: 048
  2. UPTRAVI [Suspect]
     Active Substance: SELEXIPAG
     Dosage: 200 MCG, BID
     Route: 048
     Dates: start: 20170119
  3. UPTRAVI [Suspect]
     Active Substance: SELEXIPAG
     Dosage: 200 MCG, BID
     Route: 048
     Dates: start: 20170128
  4. UPTRAVI [Suspect]
     Active Substance: SELEXIPAG
     Dosage: 200 MCG, UNK
     Route: 048
     Dates: start: 20170419
  5. UPTRAVI [Suspect]
     Active Substance: SELEXIPAG
     Dosage: 600 MCG, BID
     Route: 048
  6. TRACLEER [Suspect]
     Active Substance: BOSENTAN
     Indication: PULMONARY ARTERIAL HYPERTENSION
     Dosage: 125 MG, BID
     Route: 048
     Dates: start: 20121025
  7. REVATIO [Suspect]
     Active Substance: SILDENAFIL CITRATE
     Indication: PRODUCT USED FOR UNKNOWN INDICATION
     Route: 065
  8. UPTRAVI [Suspect]
     Active Substance: SELEXIPAG
     Indication: PULMONARY ARTERIAL HYPERTENSION
     Dosage: 400 MCG, BID
     Route: 048
     Dates: start: 20170119
  9. UPTRAVI [Suspect]
     Active Substance: SELEXIPAG
     Dosage: 200 MCG, BID
     Route: 048
     Dates: start: 20170322
  10. UPTRAVI [Suspect]
     Active Substance: SELEXIPAG
     Dosage: 400 MCG IN AM, 200 MCG IN PM
     Route: 048
     Dates: start: 20170411
  11. UPTRAVI [Suspect]
     Active Substance: SELEXIPAG
     Dosage: 200 MCG, QD
     Route: 048
     Dates: start: 20170131
  12. CYTOMEL [Concomitant]
     Active Substance: LIOTHYRONINE SODIUM

REACTIONS (18)
  - Headache [Not Recovered/Not Resolved]
  - Inner ear disorder [Not Recovered/Not Resolved]
  - Fall [Unknown]
  - Vertigo [Not Recovered/Not Resolved]
  - Toothache [Not Recovered/Not Resolved]
  - Back pain [Not Recovered/Not Resolved]
  - Dyspnoea [Not Recovered/Not Resolved]
  - Heart rate increased [Recovered/Resolved]
  - Dizziness [Not Recovered/Not Resolved]
  - Bedridden [Not Recovered/Not Resolved]
  - Nausea [Not Recovered/Not Resolved]
  - Diarrhoea [Not Recovered/Not Resolved]
  - Muscle spasms [Not Recovered/Not Resolved]
  - Decreased appetite [Not Recovered/Not Resolved]
  - Pain in extremity [Not Recovered/Not Resolved]
  - Fear [Unknown]
  - Flushing [Not Recovered/Not Resolved]
  - Fatigue [Not Recovered/Not Resolved]

NARRATIVE: CASE EVENT DATE: 20170119
